FAERS Safety Report 23429038 (Version 2)
Quarter: 2024Q3

REPORT INFORMATION
  Report Type: Spontaneous
  Country: US (occurrence: US)
  Receive Date: 20240122
  Receipt Date: 20240716
  Transmission Date: 20241016
  Serious: No
  Sender: SANOFI AVENTIS
  Company Number: US-SA-SAC20240116000096

PATIENT
  Age: 7 Year
  Sex: Female
  Weight: 31.7 kg

DRUGS (1)
  1. DUPIXENT [Suspect]
     Active Substance: DUPILUMAB
     Indication: Dermatitis atopic
     Dosage: 200 MG, QOW
     Route: 058
     Dates: start: 202310

REACTIONS (3)
  - Eczema [Unknown]
  - Therapeutic response shortened [Unknown]
  - Fear of injection [Unknown]
